FAERS Safety Report 7713578-7 (Version None)
Quarter: 2011Q3

REPORT INFORMATION
  Report Type: 
  Country: None (occurrence: None)
  Receive Date: 20110826
  Receipt Date: 20110812
  Transmission Date: 20111222
  Serious: Yes (Hospitalization)
  Sender: FDA-Public Use
  Company Number: US-GLAXOSMITHKLINE-A0817542A

PATIENT
  Age: 52 Year
  Sex: Female
  Weight: 131.8 kg

DRUGS (11)
  1. AVANDIA [Suspect]
     Indication: DIABETES MELLITUS
     Dosage: 8MG PER DAY
     Route: 048
     Dates: start: 20030101, end: 20090101
  2. LIPITOR [Concomitant]
  3. XANAX [Concomitant]
  4. GLYBURIDE [Concomitant]
  5. SINGULAIR [Concomitant]
  6. SYNTHROID [Concomitant]
  7. COREG [Concomitant]
  8. ADVAIR DISKUS 100/50 [Concomitant]
  9. ALBUTEROL SULFATE AUTOHALER [Concomitant]
  10. METFORMIN HCL [Concomitant]
  11. PROAIR HFA [Concomitant]

REACTIONS (4)
  - SINUS ARRHYTHMIA [None]
  - VENTRICULAR TACHYCARDIA [None]
  - HEART VALVE INCOMPETENCE [None]
  - ATRIOVENTRICULAR BLOCK [None]
